FAERS Safety Report 8808736 (Version 1)
Quarter: 2012Q4

REPORT INFORMATION
  Report Type: 
  Country: US (occurrence: US)
  Receive Date: 20120926
  Receipt Date: 20120926
  Transmission Date: 20130627
  Serious: No
  Sender: FDA-Public Use
  Company Number: US-BAYER-2012-098346

PATIENT
  Age: 60 Year
  Sex: Female
  Weight: 104.31 kg

DRUGS (6)
  1. BETASERON [Suspect]
     Dosage: 0.25 mg, QOD
     Route: 058
  2. AMITRIPTYLIN [Concomitant]
     Dosage: 25 mg, UNK
     Route: 048
  3. CARISOPRODOL [Concomitant]
     Dosage: 350 mg, UNK
     Route: 048
  4. CLONAZEPAM [Concomitant]
     Dosage: 0.5 mg, UNK
     Route: 048
  5. PAROXETINE [Concomitant]
     Dosage: 20 mg, UNK
     Route: 048
  6. NITROFURANTOIN [Concomitant]
     Dosage: 100 mg, UNK
     Route: 048

REACTIONS (2)
  - Injection site erythema [Unknown]
  - Injection site irritation [Unknown]
